FAERS Safety Report 23777268 (Version 5)
Quarter: 2025Q1

REPORT INFORMATION
  Report Type: Spontaneous
  Country: US (occurrence: US)
  Receive Date: 20240424
  Receipt Date: 20250122
  Transmission Date: 20250409
  Serious: Yes (Hospitalization)
  Sender: ELI LILLY AND COMPANY
  Company Number: US-ELI_LILLY_AND_COMPANY-US202404013738

PATIENT
  Age: 56 Year
  Sex: Female

DRUGS (2)
  1. VERZENIO [Suspect]
     Active Substance: ABEMACICLIB
     Indication: Breast cancer female
     Dosage: 150 MG, BID
     Route: 048
     Dates: start: 20240413
  2. VERZENIO [Suspect]
     Active Substance: ABEMACICLIB
     Dosage: 150 MG, BID
     Route: 048

REACTIONS (18)
  - Fall [Unknown]
  - Abdominal pain upper [Recovered/Resolved]
  - Balance disorder [Unknown]
  - Dyspnoea [Unknown]
  - Hot flush [Unknown]
  - Depression [Not Recovered/Not Resolved]
  - Night sweats [Unknown]
  - Anxiety [Not Recovered/Not Resolved]
  - Arthralgia [Unknown]
  - Cough [Unknown]
  - Dizziness [Recovering/Resolving]
  - Headache [Unknown]
  - Headache [Recovered/Resolved]
  - Diarrhoea [Recovered/Resolved]
  - Diarrhoea [Unknown]
  - Vomiting [Recovered/Resolved]
  - Fatigue [Not Recovered/Not Resolved]
  - Nausea [Unknown]

NARRATIVE: CASE EVENT DATE: 20240414
